FAERS Safety Report 15866301 (Version 1)
Quarter: 2019Q1

REPORT INFORMATION
  Report Type: Spontaneous
  Country: US (occurrence: US)
  Receive Date: 20190102
  Receipt Date: 20190102
  Transmission Date: 20190417
  Serious: Yes (Hospitalization)
  Sender: FDA-Public Use
  Company Number: None

PATIENT
  Age: 49 Year
  Sex: Female

DRUGS (1)
  1. LETAIRIS [Suspect]
     Active Substance: AMBRISENTAN
     Indication: PULMONARY ARTERIAL HYPERTENSION
     Route: 048
     Dates: start: 20181126

REACTIONS (7)
  - Tachycardia [None]
  - Leukocytosis [None]
  - Sepsis [None]
  - Tachypnoea [None]
  - Hypotension [None]
  - Lenticular opacities [None]
  - Pyrexia [None]

NARRATIVE: CASE EVENT DATE: 20181124
